FAERS Safety Report 4416131-6 (Version None)
Quarter: 2004Q3

REPORT INFORMATION
  Report Type: 
  Country: None (occurrence: None)
  Receive Date: 20040730
  Receipt Date: 20040715
  Transmission Date: 20050211
  Serious: Yes (Other)
  Sender: FDA-Public Use
  Company Number: 201521

PATIENT
  Age: 61 Year
  Sex: Male
  Weight: 102.0593 kg

DRUGS (11)
  1. AVONEX [Suspect]
     Indication: MULTIPLE SCLEROSIS
     Dosage: 30 MCG QW IM
     Route: 030
     Dates: start: 20000101, end: 20030101
  2. AVONEX [Suspect]
     Indication: MULTIPLE SCLEROSIS
     Dosage: 30 MCG QW IM
     Route: 030
     Dates: start: 20030101, end: 20040601
  3. AVONEX [Suspect]
     Indication: MULTIPLE SCLEROSIS
     Dosage: 30 MCG QW IM
     Route: 030
     Dates: start: 20040601
  4. SYNTHROID [Concomitant]
  5. MULTIVITAMIN [Concomitant]
  6. ALLOPURINOL [Concomitant]
  7. HYDROCHLOROTHIAZIDE [Concomitant]
  8. POTASSIUM [Concomitant]
  9. COLACE [Concomitant]
  10. UROCIT-K [Concomitant]
  11. GLUCOSAMINE W/CHONDROITIN SULFATES [Concomitant]

REACTIONS (4)
  - CONFUSIONAL STATE [None]
  - INFLUENZA LIKE ILLNESS [None]
  - MUSCLE CRAMP [None]
  - PROSTATE CANCER [None]
